FAERS Safety Report 12412737 (Version 2)
Quarter: 2016Q2

REPORT INFORMATION
  Report Type: Spontaneous
  Country: JP (occurrence: JP)
  Receive Date: 20160527
  Receipt Date: 20160603
  Transmission Date: 20160815
  Serious: Yes (Death)
  Sender: FDA-Public Use
  Company Number: JP-BAYER-2016-101670

PATIENT
  Age: 91 Year
  Sex: Female

DRUGS (3)
  1. VITAMINS NOS [Concomitant]
     Active Substance: VITAMINS
     Dosage: UNK, UNK
     Route: 048
  2. NEXIUM [Concomitant]
     Active Substance: ESOMEPRAZOLE MAGNESIUM
     Dosage: UNK, UNK
     Route: 048
  3. BAYASPIRIN [Suspect]
     Active Substance: ASPIRIN
     Dosage: UNK UNK, UNK
     Route: 048

REACTIONS (1)
  - Death [Fatal]
